FAERS Safety Report 6740016-3 (Version None)
Quarter: 2010Q2

REPORT INFORMATION
  Report Type: 
  Country: None (occurrence: None)
  Receive Date: 20100525
  Receipt Date: 20100521
  Transmission Date: 20101027
  Serious: Yes (Hospitalization)
  Sender: FDA-Public Use
  Company Number: JP-B.I. PHARMACEUTICALS,INC./RIDGEFIELD-2010-BP-04289NB

PATIENT
  Sex: Male
  Weight: 66 kg

DRUGS (12)
  1. MICARDIS [Suspect]
     Indication: HYPERTENSION
     Dosage: 80 MG
     Route: 048
     Dates: start: 20060710, end: 20100326
  2. LIPITOR [Suspect]
     Indication: HYPERLIPIDAEMIA
     Dosage: 10 MG
     Route: 048
     Dates: start: 20060714, end: 20100326
  3. ALOSITOL [Suspect]
     Indication: HYPERURICAEMIA
     Dosage: 100 MG
     Route: 048
     Dates: start: 20060710, end: 20100326
  4. PA (NON-PYRINE COLD PREPARATION) [Suspect]
     Indication: NASOPHARYNGITIS
     Dosage: 6DF
     Route: 048
     Dates: start: 20100324, end: 20100326
  5. FLOMOX [Suspect]
     Indication: NASOPHARYNGITIS
     Dosage: 300 MG
     Route: 048
     Dates: start: 20100324, end: 20100326
  6. ARTIST [Concomitant]
     Indication: HYPERTENSION
     Dosage: 5 MG
     Route: 048
     Dates: start: 20060602
  7. ASPIRIN [Concomitant]
     Dosage: 100 MG
     Route: 048
     Dates: start: 20060602
  8. MUCOSTA [Concomitant]
     Indication: GASTRITIS
     Route: 048
     Dates: start: 20060614
  9. ADALAT CC [Concomitant]
     Indication: HYPERTENSION
     Dosage: 40 MG
     Route: 048
     Dates: start: 20060710
  10. VESICARE [Concomitant]
     Dosage: 2.5 MG
     Route: 048
  11. EVIPROSTAT [Concomitant]
     Dosage: 3DF
     Route: 048
  12. LOXONIN [Concomitant]
     Indication: NASOPHARYNGITIS
     Dosage: 120 MG
     Route: 048
     Dates: start: 20100324, end: 20100326

REACTIONS (6)
  - BACTERAEMIA [None]
  - NASOPHARYNGITIS [None]
  - PLATELET COUNT DECREASED [None]
  - PROSTATITIS [None]
  - RENAL FAILURE ACUTE [None]
  - RHABDOMYOLYSIS [None]
